FAERS Safety Report 4545113-9 (Version None)
Quarter: 2005Q1

REPORT INFORMATION
  Report Type: 
  Country: None (occurrence: None)
  Receive Date: 20050104
  Receipt Date: 20050104
  Transmission Date: 20050727
  Serious: Yes (Hospitalization, Other)
  Sender: FDA-Public Use
  Company Number: None

PATIENT
  Sex: Male
  Weight: 74 kg

DRUGS (2)
  1. IBUPROFEN [Suspect]
     Indication: INFLAMMATION
     Dosage: 600 MG PO QID
     Route: 048
     Dates: start: 20030913, end: 20030929
  2. IBUPROFEN [Suspect]
     Indication: PAIN
     Dosage: 600 MG PO QID
     Route: 048
     Dates: start: 20030913, end: 20030929

REACTIONS (2)
  - FAECES DISCOLOURED [None]
  - MELAENA [None]
